FAERS Safety Report 13749312 (Version 9)
Quarter: 2018Q1

REPORT INFORMATION
  Report Type: Report from Study
  Country: CA (occurrence: CA)
  Receive Date: 20170713
  Receipt Date: 20180117
  Transmission Date: 20180508
  Serious: Yes (Death, Hospitalization, Other)
  Sender: FDA-Public Use
  Company Number: CA-GLAXOSMITHKLINE-CA2017GSK107396

PATIENT
  Age: 66 Year
  Sex: Male

DRUGS (3)
  1. MORPHINE [Suspect]
     Active Substance: MORPHINE
     Indication: PRODUCT USED FOR UNKNOWN INDICATION
     Dosage: UNK
  2. MEPOLIZUMAB [Suspect]
     Active Substance: MEPOLIZUMAB
     Indication: ASTHMA
     Dosage: 100 MG, Z
     Route: 042
  3. MEPOLIZUMAB [Suspect]
     Active Substance: MEPOLIZUMAB
     Dosage: 100 MG, Z
     Route: 042

REACTIONS (15)
  - Hospice care [Unknown]
  - Nephrolithiasis [Unknown]
  - Hallucination [Unknown]
  - Lung infection [Unknown]
  - Fatigue [Unknown]
  - Dyspnoea [Recovered/Resolved]
  - Lung disorder [Unknown]
  - Chronic obstructive pulmonary disease [Fatal]
  - Asthma [Not Recovered/Not Resolved]
  - Abnormal behaviour [Unknown]
  - Therapy cessation [Unknown]
  - Respiratory tract congestion [Unknown]
  - Lower respiratory tract infection [Unknown]
  - Continuous positive airway pressure [Unknown]
  - Ill-defined disorder [Unknown]

NARRATIVE: CASE EVENT DATE: 20170610
